FAERS Safety Report 6375957-2 (Version None)
Quarter: 2009Q3

REPORT INFORMATION
  Report Type: 
  Country: None (occurrence: None)
  Receive Date: 20090924
  Receipt Date: 20090918
  Transmission Date: 20100115
  Serious: Yes (Other)
  Sender: FDA-Public Use
  Company Number: US-ELI_LILLY_AND_COMPANY-US200705007186

PATIENT
  Sex: Female
  Weight: 84.354 kg

DRUGS (12)
  1. BYETTA [Suspect]
     Indication: TYPE 2 DIABETES MELLITUS
     Dosage: 5 UG, UNKNOWN
     Dates: start: 20050101, end: 20060101
  2. BYETTA [Suspect]
     Dosage: 10 UG, UNKNOWN
     Dates: start: 20060101, end: 20060501
  3. BYETTA [Suspect]
     Dosage: 5 UG, 2/D
     Route: 058
     Dates: start: 20070401, end: 20070501
  4. BYETTA [Suspect]
     Dosage: 10 UG, 2/D
     Route: 058
     Dates: start: 20070501
  5. TOPROL-XL [Concomitant]
     Indication: RENAL HYPERTENSION
     Dosage: 50 MG, 2/D
  6. SINGULAIR [Concomitant]
     Dosage: 10 MG, DAILY (1/D)
  7. METFORMIN [Concomitant]
     Dosage: 250 MG, DAILY (1/D)
  8. NEXIUM [Concomitant]
     Dosage: 40 MG, DAILY (1/D)
  9. FUROSEMIDE [Concomitant]
     Dosage: 40 MG, DAILY (1/D)
  10. ZOCOR [Concomitant]
     Dosage: 40 MG, DAILY (1/D)
  11. ACTIFED [Concomitant]
     Dosage: UNK, 2/D
  12. COREG [Concomitant]
     Indication: RENAL HYPERTENSION

REACTIONS (4)
  - AUTOIMMUNE THYROIDITIS [None]
  - COUGH [None]
  - THYROID CANCER [None]
  - WEIGHT DECREASED [None]
